FAERS Safety Report 15443840 (Version 1)
Quarter: 2018Q3

REPORT INFORMATION
  Report Type: Spontaneous
  Country: SI (occurrence: SI)
  Receive Date: 20180928
  Receipt Date: 20180928
  Transmission Date: 20181010
  Serious: Yes (Other)
  Sender: FDA-Public Use
  Company Number: SI-PFIZER INC-2018388598

PATIENT
  Age: 48 Year
  Sex: Female

DRUGS (9)
  1. CONCOR [Suspect]
     Active Substance: BISOPROLOL FUMARATE
     Dosage: UNK
     Route: 065
  2. EUTHYROX [Suspect]
     Active Substance: LEVOTHYROXINE SODIUM
     Dosage: UNK
     Route: 065
  3. PANTOPRAZOLE [Suspect]
     Active Substance: PANTOPRAZOLE
     Dosage: UNK UNK, QD (AT MORNING)
     Route: 065
  4. ASPIRIN. [Suspect]
     Active Substance: ASPIRIN
     Dosage: UNK UNK, QD (AT MORNING)
     Route: 065
  5. PRENESSA [Suspect]
     Active Substance: PERINDOPRIL
     Dosage: UNK
     Route: 065
  6. ATORIS [Suspect]
     Active Substance: ATORVASTATIN CALCIUM
     Dosage: UNK UNK, QD (AT EVENING)
     Route: 065
  7. PRENESSA [Suspect]
     Active Substance: PERINDOPRIL
     Dosage: UNK UNK, QD (AT MORNING)
     Route: 065
  8. ALDACTONE [Suspect]
     Active Substance: SPIRONOLACTONE
     Dosage: UNK UNK, QD (AT MORNING)
     Route: 065
  9. CONCOR [Suspect]
     Active Substance: BISOPROLOL FUMARATE
     Dosage: UNK
     Route: 065

REACTIONS (18)
  - Cardiac arrest [Recovered/Resolved]
  - Pleural effusion [Unknown]
  - Ventricular arrhythmia [Recovered/Resolved]
  - Hepatitis C [Recovered/Resolved]
  - Electrocardiogram QRS complex prolonged [Recovered/Resolved]
  - Ejection fraction decreased [Not Recovered/Not Resolved]
  - Pneumonia [Unknown]
  - Acute myocardial infarction [Recovered/Resolved]
  - Blood pressure increased [Recovered/Resolved]
  - QRS axis abnormal [Recovered/Resolved]
  - Dyspnoea [Unknown]
  - Memory impairment [Unknown]
  - Electrocardiogram T wave inversion [Recovered/Resolved]
  - Respiratory tract infection [Unknown]
  - Cardiac failure [Recovered/Resolved]
  - Hypothyroidism [Unknown]
  - Defect conduction intraventricular [Recovered/Resolved]
  - Cardiac murmur [Recovered/Resolved]

NARRATIVE: CASE EVENT DATE: 201603
